FAERS Safety Report 12371630 (Version 1)
Quarter: 2016Q2

REPORT INFORMATION
  Report Type: Report from Study
  Country: CA (occurrence: CA)
  Receive Date: 20160516
  Receipt Date: 20160516
  Transmission Date: 20160815
  Serious: Yes (Other)
  Sender: FDA-Public Use
  Company Number: PHHY2012CA046866

PATIENT
  Age: 64 Year
  Sex: Female

DRUGS (2)
  1. SANDOSTATIN LAR DEPOT [Suspect]
     Active Substance: OCTREOTIDE ACETATE
     Indication: CARCINOID TUMOUR
     Dosage: 30 MG, EVERY 4 WEEKS
     Route: 030
     Dates: start: 20110727
  2. SANDOSTATIN [Suspect]
     Active Substance: OCTREOTIDE ACETATE
     Indication: CARCINOID TUMOUR
     Dosage: 50 UG, ONCE/SINGLE (TEST DOSE)
     Route: 058
     Dates: start: 20110712, end: 20110712

REACTIONS (10)
  - Malignant neoplasm progression [Unknown]
  - Musculoskeletal pain [Unknown]
  - Migraine with aura [Unknown]
  - Metastases to liver [Unknown]
  - Scintillating scotoma [Unknown]
  - Flushing [Unknown]
  - Constipation [Unknown]
  - Underdose [Unknown]
  - Syringe issue [Unknown]
  - Metamorphopsia [Recovered/Resolved]

NARRATIVE: CASE EVENT DATE: 201604
